FAERS Safety Report 9714517 (Version 1)
Quarter: 2013Q4

REPORT INFORMATION
  Report Type: Report from Study
  Country: CA (occurrence: CA)
  Receive Date: 20131126
  Receipt Date: 20131126
  Transmission Date: 20140711
  Serious: Yes (Hospitalization, Other)
  Sender: FDA-Public Use
  Company Number: CA-ABBVIE-13P-028-1170927-00

PATIENT
  Age: 87 Year
  Sex: Male

DRUGS (1)
  1. LUPRON DEPOT [Suspect]
     Indication: PROSTATE CANCER
     Route: 030
     Dates: start: 20121105

REACTIONS (7)
  - Post procedural haematuria [Unknown]
  - Dysuria [Unknown]
  - Bladder transitional cell carcinoma [Recovering/Resolving]
  - Asthenia [Unknown]
  - Anaemia [Unknown]
  - Oedema peripheral [Unknown]
  - Activities of daily living impaired [Unknown]
